FAERS Safety Report 16115514 (Version 2)
Quarter: 2019Q2

REPORT INFORMATION
  Report Type: Spontaneous
  Country: CA (occurrence: CA)
  Receive Date: 20190325
  Receipt Date: 20190523
  Transmission Date: 20190711
  Serious: Yes (Hospitalization)
  Sender: FDA-Public Use
  Company Number: CA-CELLTRION INC.-2018CA022277

PATIENT

DRUGS (12)
  1. INFLECTRA [Suspect]
     Active Substance: INFLIXIMAB-DYYB
     Indication: CROHN^S DISEASE
     Dosage: 300 MG ON 0, 2, 6 WEEKS, THEN EVERY 8 WEEKS
     Route: 042
     Dates: start: 20180709, end: 20180709
  2. INFLECTRA [Suspect]
     Active Substance: INFLIXIMAB-DYYB
     Dosage: 300 MG ON 0, 2, 6 WEEKS, THEN EVERY 8 WEEKS
     Route: 042
     Dates: start: 20181023, end: 20181023
  3. INFLECTRA [Suspect]
     Active Substance: INFLIXIMAB-DYYB
     Dosage: 300 MG ON 0, 2, 6 WEEKS, THEN EVERY 8 WEEKS
     Route: 042
     Dates: start: 20190104, end: 20190104
  4. BUDESONIDE. [Concomitant]
     Active Substance: BUDESONIDE
     Dosage: UNK
  5. ONDANSETRON [Concomitant]
     Active Substance: ONDANSETRON
     Dosage: 3 TIMES WEEKLY
  6. INFLECTRA [Suspect]
     Active Substance: INFLIXIMAB-DYYB
     Dosage: 300 MG EVERY 0, 2, 6 WEEKS, THEN EVERY 8 WEEKS
     Route: 042
     Dates: start: 20180822, end: 20180822
  7. INFLECTRA [Suspect]
     Active Substance: INFLIXIMAB-DYYB
     Dosage: 300 MG ON 0, 2, 6 WEEKS, THEN EVERY 8 WEEKS
     Route: 042
     Dates: start: 20180822, end: 20180822
  8. INFLECTRA [Suspect]
     Active Substance: INFLIXIMAB-DYYB
     Dosage: 300 MG ON WEEK 0, 2, 6  THEN EVERY 8 WEEKS
     Route: 042
     Dates: start: 20190311
  9. EFFEXOR [Concomitant]
     Active Substance: VENLAFAXINE HYDROCHLORIDE
     Dosage: 225 MG, 1X/DAY
  10. PREDNISONE. [Concomitant]
     Active Substance: PREDNISONE
     Dosage: UNK
  11. PREDNISONE. [Concomitant]
     Active Substance: PREDNISONE
     Dosage: UNK
  12. ENTOCORT [Concomitant]
     Active Substance: BUDESONIDE
     Dosage: 2 DF, UNK

REACTIONS (11)
  - Vomiting [Recovered/Resolved]
  - Nausea [Not Recovered/Not Resolved]
  - Heart rate irregular [Unknown]
  - Condition aggravated [Not Recovered/Not Resolved]
  - Malaise [Unknown]
  - Hunger [Unknown]
  - Blood pressure fluctuation [Unknown]
  - Nasopharyngitis [Unknown]
  - Pain in extremity [Unknown]
  - Condition aggravated [Unknown]
  - Fatigue [Unknown]

NARRATIVE: CASE EVENT DATE: 20180822
